FAERS Safety Report 7793506-9 (Version None)
Quarter: 2011Q4

REPORT INFORMATION
  Report Type: 
  Country: None (occurrence: None)
  Receive Date: 20111003
  Receipt Date: 20110923
  Transmission Date: 20120403
  Serious: Yes (Other)
  Sender: FDA-Public Use
  Company Number: US-BAXTER-2011BH030023

PATIENT
  Sex: Female

DRUGS (2)
  1. PROMETHAZINE [Suspect]
     Indication: VOMITING
     Route: 030
     Dates: start: 20110919, end: 20110919
  2. PROMETHAZINE [Suspect]
     Indication: NAUSEA
     Route: 030
     Dates: start: 20110919, end: 20110919

REACTIONS (3)
  - STAPHYLOCOCCAL INFECTION [None]
  - DRUG ADMINISTRATION ERROR [None]
  - INJECTION SITE NECROSIS [None]
